FAERS Safety Report 17291263 (Version 1)
Quarter: 2020Q1

REPORT INFORMATION
  Report Type: Spontaneous
  Country: US (occurrence: US)
  Receive Date: 20200121
  Receipt Date: 20200121
  Transmission Date: 20200409
  Serious: Yes (Life-Threatening)
  Sender: FDA-Public Use
  Company Number: NVSC2020US012769

PATIENT
  Age: 53 Year
  Sex: Male

DRUGS (4)
  1. VANCOMYCIN [Suspect]
     Active Substance: VANCOMYCIN
     Indication: PNEUMONIA PSEUDOMONAL
     Dosage: UNK
     Route: 065
  2. CHROMIC CHLORIDE. [Concomitant]
     Active Substance: CHROMIC CHLORIDE
     Indication: PRODUCT USED FOR UNKNOWN INDICATION
     Dosage: UNK(THREE SEPARATE COURSES)
     Route: 065
  3. INSULIN [Concomitant]
     Active Substance: INSULIN NOS
     Indication: DIABETES MELLITUS
     Dosage: 300 IU, QD
     Route: 065
  4. CEFEPIME [Suspect]
     Active Substance: CEFEPIME HYDROCHLORIDE
     Indication: PNEUMONIA PSEUDOMONAL
     Dosage: UNK
     Route: 065

REACTIONS (1)
  - Pneumonia pseudomonal [Recovered/Resolved]
